FAERS Safety Report 4559990-9 (Version None)
Quarter: 2005Q1

REPORT INFORMATION
  Report Type: 
  Country: None (occurrence: None)
  Receive Date: 20050120
  Receipt Date: 20050120
  Transmission Date: 20050727
  Serious: Yes (Other)
  Sender: FDA-Public Use
  Company Number: None

PATIENT
  Age: 39 Year
  Sex: Male
  Weight: 62.5 kg

DRUGS (2)
  1. CARBAMAZEPINE [Suspect]
     Indication: CONVULSION
     Dosage: 200 MG TWO AT AM , ONE AT NOON, TWO AT PM
     Dates: start: 20040922, end: 20050106
  2. DEPAKOTE [Concomitant]

REACTIONS (2)
  - CONVULSION [None]
  - PHARMACEUTICAL PRODUCT COMPLAINT [None]
